FAERS Safety Report 9818237 (Version 1)
Quarter: 2013Q4

REPORT INFORMATION
  Report Type: Spontaneous
  Country: US (occurrence: None)
  Receive Date: 20131224
  Receipt Date: 20131224
  Transmission Date: 20140711
  Serious: No
  Sender: FDA-Public Use
  Company Number: PHEH2013US022810

PATIENT
  Age: 45 Year
  Sex: Female
  Weight: 86.2 kg

DRUGS (8)
  1. GILENYA (FINGOLIMOD) CAPSULE [Suspect]
     Indication: SECONDARY PROGRESSIVE MULTIPLE SCLEROSIS
     Route: 048
  2. GILENYA (FINGOLIMOD) CAPSULE [Suspect]
     Indication: OFF LABEL USE
     Route: 048
  3. GABAPENTIN (GABAPENTIN) [Concomitant]
  4. CARBAMAZEPIN (CARBAMAZEPINE) [Concomitant]
  5. PREMARIN (ESTROGENS CONJUGATED) [Concomitant]
  6. ACYCLOVIR (ACICLOVIR) (ACICLOVIR) [Concomitant]
  7. CELEBREX (CELECOXIB) [Concomitant]
  8. VITAMAN (ASCORBIC ACID, CALCIUM PANTOTHENATE, CALCIUM PHOSPHATE, ERGOCALCIFEROL, FERROUS FUMARATE) [Concomitant]

REACTIONS (1)
  - No adverse event [None]
